FAERS Safety Report 4617593-1 (Version None)
Quarter: 2005Q1

REPORT INFORMATION
  Report Type: 
  Country: None (occurrence: None)
  Receive Date: 20050322
  Receipt Date: 20050309
  Transmission Date: 20050727
  Serious: Yes (Death)
  Sender: FDA-Public Use
  Company Number: MK200502-0195-2

PATIENT
  Age: 38 Year
  Sex: Female

DRUGS (2)
  1. METHADOSE [Suspect]
     Indication: DEPENDENCE
  2. COCAINE [Suspect]

REACTIONS (3)
  - BRONCHOPNEUMONIA [None]
  - COMA [None]
  - DRUG TOXICITY [None]
